FAERS Safety Report 7648364-X (Version None)
Quarter: 2011Q3

REPORT INFORMATION
  Report Type: 
  Country: None (occurrence: None)
  Receive Date: 20110801
  Receipt Date: 20110725
  Transmission Date: 20111222
  Serious: Yes (Other)
  Sender: FDA-Public Use
  Company Number: CA-BAYER-2011-064381

PATIENT
  Age: 27 Year
  Sex: Female
  Weight: 47.619 kg

DRUGS (2)
  1. YASMIN [Suspect]
     Dosage: 1 DF, QD, CYCLICAL
     Route: 048
  2. PREVACID [Concomitant]

REACTIONS (3)
  - KERATITIS [None]
  - VISION BLURRED [None]
  - VISUAL ACUITY REDUCED [None]
